FAERS Safety Report 6837372-4 (Version None)
Quarter: 2010Q3

REPORT INFORMATION
  Report Type: 
  Country: None (occurrence: None)
  Receive Date: 20100713
  Receipt Date: 20070510
  Transmission Date: 20110219
  Serious: No
  Sender: FDA-Public Use
  Company Number: US-PFIZER INC-2007039289

PATIENT
  Sex: Female
  Weight: 80.7 kg

DRUGS (4)
  1. CHANTIX [Suspect]
     Indication: SMOKING CESSATION THERAPY
     Dates: start: 20070507
  2. PERCOCET [Concomitant]
     Indication: PAIN
  3. METFORMIN [Concomitant]
     Indication: DIABETES MELLITUS
  4. VITAMIN B-12 [Concomitant]

REACTIONS (2)
  - NAUSEA [None]
  - RASH [None]
